FAERS Safety Report 5131156-3 (Version None)
Quarter: 2006Q3

REPORT INFORMATION
  Report Type: 
  Country: None (occurrence: None)
  Receive Date: 20060830
  Receipt Date: 20050810
  Transmission Date: 20061208
  Serious: Yes (Other)
  Sender: FDA-Public Use
  Company Number: 200511587BWH

PATIENT
  Age: 64 Year
  Sex: Male
  Weight: 91 kg

DRUGS (9)
  1. TRASYLOL [Suspect]
     Indication: AORTIC VALVE REPLACEMENT
     Dosage: 100 ML, ONCE, INTRAVENOUS
     Route: 042
     Dates: start: 20050803
  2. PRECEDEX [Suspect]
     Indication: SEDATION
     Dosage: INTRAVENOUS
     Route: 042
     Dates: start: 20050803
  3. FORANE [Concomitant]
  4. HEPARIN [Concomitant]
  5. MANNITOL [Concomitant]
  6. ALBUMIN (HUMAN) [Concomitant]
  7. PLASMA-LYTE [ELECTROLYTES NOS] [Concomitant]
  8. PROTAMINE SULFATE [Concomitant]
  9. LIDOCAINE [Concomitant]

REACTIONS (2)
  - BRONCHOSPASM [None]
  - HYPERSENSITIVITY [None]
